FAERS Safety Report 16593143 (Version 1)
Quarter: 2019Q3

REPORT INFORMATION
  Report Type: Report from Study
  Country: None (occurrence: US)
  Receive Date: 20190718
  Receipt Date: 20190718
  Transmission Date: 20191004
  Serious: Yes (Other)
  Sender: FDA-Public Use
  Company Number: US-ABBVIE-19K-163-2806156-00

PATIENT
  Sex: Female
  Weight: 83.99 kg

DRUGS (6)
  1. LYRICA [Concomitant]
     Active Substance: PREGABALIN
     Indication: PAIN
  2. METOPROLOL. [Concomitant]
     Active Substance: METOPROLOL
     Indication: CARDIAC DISORDER
  3. LISINOPRIL. [Concomitant]
     Active Substance: LISINOPRIL
     Indication: HYPERTENSION
  4. METOPROLOL. [Concomitant]
     Active Substance: METOPROLOL
     Indication: BLOOD PRESSURE MEASUREMENT
  5. HUMIRA [Suspect]
     Active Substance: ADALIMUMAB
     Indication: RHEUMATOID ARTHRITIS
     Route: 058
     Dates: start: 201608, end: 2019
  6. HUMIRA [Suspect]
     Active Substance: ADALIMUMAB
     Route: 058
     Dates: start: 2019

REACTIONS (2)
  - Diabetes mellitus [Not Recovered/Not Resolved]
  - Spinal operation [Recovered/Resolved]

NARRATIVE: CASE EVENT DATE: 2019
